FAERS Safety Report 10217373 (Version 1)
Quarter: 2014Q2

REPORT INFORMATION
  Report Type: Spontaneous
  Country: US (occurrence: US)
  Receive Date: 20140604
  Receipt Date: 20140604
  Transmission Date: 20141212
  Serious: No
  Sender: FDA-Public Use
  Company Number: US-SA-2014SA010956

PATIENT
  Age: 87 Year
  Sex: Female

DRUGS (3)
  1. LANTUS SOLOSTAR [Suspect]
     Indication: TYPE 2 DIABETES MELLITUS
     Dosage: TAKEN FROM: 1 YEAR?DOSE: 8/8 UNITS AM/PM
     Route: 051
  2. SOLOSTAR [Concomitant]
  3. METFORMIN [Concomitant]

REACTIONS (4)
  - Vision blurred [Unknown]
  - Hearing impaired [Unknown]
  - Weight increased [Unknown]
  - Blood glucose increased [Recovering/Resolving]
